FAERS Safety Report 5059854-0 (Version None)
Quarter: 2006Q3

REPORT INFORMATION
  Report Type: 
  Country: None (occurrence: None)
  Receive Date: 20060724
  Receipt Date: 20060713
  Transmission Date: 20061208
  Serious: Yes (Death, Hospitalization)
  Sender: FDA-Public Use
  Company Number: SE-JNJFOC-20060702967

PATIENT
  Age: 31 Year
  Sex: Female

DRUGS (1)
  1. TRINOVUM [Suspect]
     Indication: CONTRACEPTION
     Route: 048

REACTIONS (1)
  - BUDD-CHIARI SYNDROME [None]
